FAERS Safety Report 24607323 (Version 1)
Quarter: 2024Q4

REPORT INFORMATION
  Report Type: Spontaneous
  Country: US (occurrence: US)
  Receive Date: 20241112
  Receipt Date: 20241112
  Transmission Date: 20250115
  Serious: Yes (Other)
  Sender: COOPERSURGICAL
  Company Number: US-COOPERSURGICAL, INC.-2024CPS003447

PATIENT
  Sex: Male

DRUGS (2)
  1. PARAGARD T 380A [Suspect]
     Active Substance: COPPER
     Dosage: UNK
     Dates: start: 20030828, end: 20130506
  2. PARAGARD T 380A [Suspect]
     Active Substance: COPPER
     Dosage: UNK
     Dates: start: 20130904

REACTIONS (2)
  - Injury [Unknown]
  - Sexual dysfunction [Unknown]
